FAERS Safety Report 7395846-4 (Version None)
Quarter: 2011Q2

REPORT INFORMATION
  Report Type: 
  Country: None (occurrence: None)
  Receive Date: 20110405
  Receipt Date: 20110325
  Transmission Date: 20111010
  Serious: Yes (Other)
  Sender: FDA-Public Use
  Company Number: GR-BAXTER-2011BH007968

PATIENT

DRUGS (1)
  1. OSMITROL INJECTION [Suspect]
     Indication: INTRACRANIAL PRESSURE INCREASED
     Route: 042

REACTIONS (2)
  - BLOOD OSMOLARITY INCREASED [None]
  - ELECTROLYTE IMBALANCE [None]
